FAERS Safety Report 21380613 (Version 1)
Quarter: 2022Q3

REPORT INFORMATION
  Report Type: Report from Study
  Country: FR (occurrence: FR)
  Receive Date: 20220927
  Receipt Date: 20220927
  Transmission Date: 20221027
  Serious: Yes (Other)
  Sender: FDA-Public Use
  Company Number: FR-MYLANLABS-2022M1096338

PATIENT
  Sex: Male

DRUGS (6)
  1. AZITHROMYCIN [Suspect]
     Active Substance: AZITHROMYCIN
     Indication: Urethritis
     Dosage: UNK (SYNDROMIC MANAGEMENT; SINGLE-DOSE ADMINISTRATION)
     Route: 048
  2. AZITHROMYCIN [Suspect]
     Active Substance: AZITHROMYCIN
     Indication: Mycoplasma genitalium infection
  3. PENICILLIN G BENZATHINE [Suspect]
     Active Substance: PENICILLIN G BENZATHINE
     Indication: Urethritis
     Dosage: UNK (SYNDROMIC MANAGEMENT)
     Route: 065
  4. PENICILLIN G BENZATHINE [Suspect]
     Active Substance: PENICILLIN G BENZATHINE
     Indication: Mycoplasma genitalium infection
  5. METRONIDAZOLE [Suspect]
     Active Substance: METRONIDAZOLE
     Indication: Urethritis
     Dosage: UNK (SYNDROMIC MANAGEMENT; SINGLE-DOSE ADMINISTRATION)
     Route: 048
  6. METRONIDAZOLE [Suspect]
     Active Substance: METRONIDAZOLE
     Indication: Mycoplasma genitalium infection

REACTIONS (1)
  - Drug ineffective [Unknown]
